FAERS Safety Report 15256387 (Version 5)
Quarter: 2019Q2

REPORT INFORMATION
  Report Type: Spontaneous
  Country: JP (occurrence: JP)
  Receive Date: 20180808
  Receipt Date: 20190627
  Transmission Date: 20190711
  Serious: Yes (Hospitalization, Other)
  Sender: FDA-Public Use
  Company Number: JP-ABBVIE-18P-087-2445717-00

PATIENT
  Age: 70 Year
  Sex: Male

DRUGS (1)
  1. LEUPLIN SR [Suspect]
     Active Substance: LEUPROLIDE ACETATE
     Indication: BULBOSPINAL MUSCULAR ATROPHY CONGENITAL
     Dosage: 11.25 MILLIGRAM, Q3MONTHS
     Route: 058
     Dates: start: 201711

REACTIONS (6)
  - Brain contusion [Recovered/Resolved]
  - IIIrd nerve paralysis [Unknown]
  - Fall [Recovered/Resolved]
  - Pneumonia aspiration [Unknown]
  - Brain herniation [Unknown]
  - Extradural haematoma [Unknown]

NARRATIVE: CASE EVENT DATE: 201805
